FAERS Safety Report 9739495 (Version 1)
Quarter: 2013Q4

REPORT INFORMATION
  Report Type: Spontaneous
  Country: US (occurrence: US)
  Receive Date: 20131209
  Receipt Date: 20131209
  Transmission Date: 20140711
  Serious: No
  Sender: FDA-Public Use
  Company Number: US-ABBVIE-12P-163-1022679-00

PATIENT
  Sex: Female
  Weight: 90.8 kg

DRUGS (2)
  1. PROMETRIUM [Suspect]
     Indication: MENOPAUSAL SYMPTOMS
     Route: 048
     Dates: start: 2010
  2. OMEPRAZOLE [Concomitant]
     Indication: PRODUCT USED FOR UNKNOWN INDICATION

REACTIONS (10)
  - Generalised oedema [Recovered/Resolved]
  - Neoplasm skin [Not Recovered/Not Resolved]
  - Cyst [Unknown]
  - Hypoaesthesia [Not Recovered/Not Resolved]
  - Headache [Unknown]
  - Vaginal discharge [Unknown]
  - Breast enlargement [Not Recovered/Not Resolved]
  - Scratch [Recovered/Resolved]
  - Influenza [Recovered/Resolved]
  - Off label use [Not Recovered/Not Resolved]
